FAERS Safety Report 9388583 (Version 1)
Quarter: 2013Q3

REPORT INFORMATION
  Report Type: Spontaneous
  Country: ES (occurrence: ES)
  Receive Date: 20130708
  Receipt Date: 20130708
  Transmission Date: 20140515
  Serious: Yes (Other)
  Sender: FDA-Public Use
  Company Number: ES-TEVA-415682ISR

PATIENT
  Age: 39 Year
  Sex: Female

DRUGS (2)
  1. PACLITAXEL [Suspect]
     Indication: BREAST CANCER METASTATIC
     Dosage: 80 MG/M2 DAILY; ON DAYS 1, 8 AND 15; CYCLES
     Route: 042
  2. GEMCITABINE [Concomitant]
     Indication: BREAST CANCER METASTATIC
     Dosage: 800 MG/M2 DAILY; ON DAYS 1, 8 AND 15; CYCLES
     Route: 042

REACTIONS (1)
  - Cystoid macular oedema [Recovered/Resolved]
